FAERS Safety Report 11460163 (Version 4)
Quarter: 2015Q4

REPORT INFORMATION
  Report Type: Spontaneous
  Country: AU (occurrence: AU)
  Receive Date: 20150904
  Receipt Date: 20151005
  Transmission Date: 20160304
  Serious: Yes (Death, Other)
  Sender: FDA-Public Use
  Company Number: AU-PFIZER INC-2008060539

PATIENT
  Age: 65 Year
  Sex: Male

DRUGS (2)
  1. VENLAFAXINE HCL [Interacting]
     Active Substance: VENLAFAXINE HYDROCHLORIDE
     Indication: DEPRESSION
     Dosage: 37.5 MG, DAILY
     Dates: start: 20080704, end: 20080707
  2. CHAMPIX [Suspect]
     Active Substance: VARENICLINE TARTRATE
     Indication: SMOKING CESSATION THERAPY
     Dosage: UNK
     Route: 048
     Dates: start: 20080515

REACTIONS (6)
  - Completed suicide [Fatal]
  - Drug interaction [Unknown]
  - Major depression [Unknown]
  - Suicide attempt [Unknown]
  - Suicidal ideation [Unknown]
  - Depression [Unknown]

NARRATIVE: CASE EVENT DATE: 200806
